FAERS Safety Report 12599226 (Version 2)
Quarter: 2016Q3

REPORT INFORMATION
  Report Type: Spontaneous
  Country: US (occurrence: US)
  Receive Date: 20160727
  Receipt Date: 20160808
  Transmission Date: 20161109
  Serious: No
  Sender: FDA-Public Use
  Company Number: US-PFIZER INC-2016339767

PATIENT
  Age: 54 Year
  Sex: Male
  Weight: 105.2 kg

DRUGS (6)
  1. GABAPENTIN. [Suspect]
     Active Substance: GABAPENTIN
     Dosage: 600 MG, 3X/DAY
     Dates: end: 2014
  2. MORPHINE [Concomitant]
     Active Substance: MORPHINE
     Indication: SURGERY
     Dosage: 15 MG, 2X/DAY
     Route: 048
     Dates: end: 2014
  3. GABAPENTIN. [Suspect]
     Active Substance: GABAPENTIN
     Indication: NEUROPATHY PERIPHERAL
     Dosage: 1600 MG, DAILY
  4. LYRICA [Concomitant]
     Active Substance: PREGABALIN
     Dosage: 150 MG, UNK
     Dates: start: 2014
  5. CELEBREX [Concomitant]
     Active Substance: CELECOXIB
     Dosage: 200 MG, UNK
     Dates: start: 2014
  6. GABAPENTIN. [Suspect]
     Active Substance: GABAPENTIN
     Dosage: 300 MG, 6 A DAY
     Dates: start: 2012

REACTIONS (2)
  - Drug ineffective for unapproved indication [Unknown]
  - Muscle spasms [Unknown]

NARRATIVE: CASE EVENT DATE: 2012
